FAERS Safety Report 8860583 (Version 2)
Quarter: 2013Q1

REPORT INFORMATION
  Report Type: Spontaneous
  Country: US (occurrence: US)
  Receive Date: 20121025
  Receipt Date: 20130322
  Transmission Date: 20140127
  Serious: Yes (Death)
  Sender: FDA-Public Use
  Company Number: US-ELI_LILLY_AND_COMPANY-US201210006872

PATIENT
  Sex: Male

DRUGS (4)
  1. AXIRON [Suspect]
     Indication: HYPOGONADISM
  2. STATIN                             /00084401/ [Concomitant]
  3. LASIX [Concomitant]
  4. ALDOSTERONE [Concomitant]

REACTIONS (1)
  - Myocardial infarction [Fatal]
